FAERS Safety Report 25942550 (Version 2)
Quarter: 2025Q4

REPORT INFORMATION
  Report Type: Spontaneous
  Country: US (occurrence: US)
  Receive Date: 20251021
  Receipt Date: 20251024
  Transmission Date: 20260118
  Serious: Yes (Other)
  Sender: IPSEN BIOPHARMACEUTICALS, INC.
  Company Number: US-IPSEN Group, Research and Development-2025-25921

PATIENT
  Age: 56 Year
  Sex: Female

DRUGS (17)
  1. DYSPORT [Suspect]
     Active Substance: ABOBOTULINUMTOXINA
     Indication: Skin wrinkling
     Dosage: 60 UNITS GLABELLAR IN 5 POINTS, 72 UNITS CROWS FEET
     Dates: start: 20250806, end: 20250806
  2. DYSPORT [Suspect]
     Active Substance: ABOBOTULINUMTOXINA
     Indication: Skin wrinkling
  3. VITAMIN D [Concomitant]
     Active Substance: VITAMIN D NOS
  4. VITAMIN B12 [Concomitant]
     Active Substance: CYANOCOBALAMIN
  5. VITAMINS [Concomitant]
     Active Substance: VITAMINS
  6. LEVOTHYROXINE [Concomitant]
     Active Substance: LEVOTHYROXINE
  7. LOSARTAN AND HYDROCHLOROTHIAZIDE [Concomitant]
     Active Substance: HYDROCHLOROTHIAZIDE\LOSARTAN POTASSIUM
  8. TOPIRAMATE [Concomitant]
     Active Substance: TOPIRAMATE
  9. ATOMOXETINE [Concomitant]
     Active Substance: ATOMOXETINE
  10. TRAZODONE [Concomitant]
     Active Substance: TRAZODONE HYDROCHLORIDE
  11. CETIRIZINE [Concomitant]
     Active Substance: CETIRIZINE HYDROCHLORIDE
  12. DILTIAZEM [Concomitant]
     Active Substance: DILTIAZEM
  13. LUBIPROSTONE [Concomitant]
     Active Substance: LUBIPROSTONE
  14. Clindamycin 1% solution [Concomitant]
     Dosage: 1% SOLUTION
  15. ALBUTEROL [Concomitant]
     Active Substance: ALBUTEROL
  16. DISULFIRAM [Concomitant]
     Active Substance: DISULFIRAM
  17. ASPIRIN [Concomitant]
     Active Substance: ASPIRIN
     Dosage: 81 MG

REACTIONS (5)
  - Neuromuscular toxicity [Unknown]
  - Product preparation issue [Unknown]
  - Off label use [Unknown]
  - Dyspnoea [Unknown]
  - Cellulitis [Unknown]

NARRATIVE: CASE EVENT DATE: 20250806
